FAERS Safety Report 7042759-3 (Version None)
Quarter: 2010Q4

REPORT INFORMATION
  Report Type: 
  Country: None (occurrence: None)
  Receive Date: 20101013
  Receipt Date: 20100113
  Transmission Date: 20110411
  Serious: No
  Sender: FDA-Public Use
  Company Number: US-ASTRAZENECA-2010SE01759

PATIENT
  Age: 58 Year
  Sex: Male
  Weight: 163.3 kg

DRUGS (1)
  1. SYMBICORT [Suspect]
     Dosage: 160/4.5 , 1 PUFF BID ,TOTAL DAILY DOSE 320 UG
     Route: 055
     Dates: start: 20100112

REACTIONS (2)
  - HEART RATE INCREASED [None]
  - SLEEP DISORDER [None]
